FAERS Safety Report 17362283 (Version 5)
Quarter: 2020Q3

REPORT INFORMATION
  Report Type: Spontaneous
  Country: US (occurrence: US)
  Receive Date: 20200203
  Receipt Date: 20200915
  Transmission Date: 20201102
  Serious: Yes (Other)
  Sender: FDA-Public Use
  Company Number: US-GILEAD-2020-0449366

PATIENT
  Sex: Female
  Weight: 111.11 kg

DRUGS (25)
  1. TRUVADA [Suspect]
     Active Substance: EMTRICITABINE\TENOFOVIR DISOPROXIL FUMARATE
     Indication: HIV INFECTION
     Dosage: UNK
     Route: 048
     Dates: start: 2009, end: 2019
  2. ZERIT [Concomitant]
     Active Substance: STAVUDINE
  3. SIMVASTATIN. [Concomitant]
     Active Substance: SIMVASTATIN
  4. IBUPROFEN. [Concomitant]
     Active Substance: IBUPROFEN
  5. EPIVIR [Concomitant]
     Active Substance: LAMIVUDINE
  6. NORVIR [Concomitant]
     Active Substance: RITONAVIR
  7. LASIX [Concomitant]
     Active Substance: FUROSEMIDE
  8. VIRACEPT [Concomitant]
     Active Substance: NELFINAVIR MESYLATE
  9. OMEPRAZOLE. [Concomitant]
     Active Substance: OMEPRAZOLE
  10. ACETAMINOPHEN. [Concomitant]
     Active Substance: ACETAMINOPHEN
  11. AMOXICILLIN. [Concomitant]
     Active Substance: AMOXICILLIN
  12. VIRAMUNE [Concomitant]
     Active Substance: NEVIRAPINE
  13. LISINOPRIL. [Concomitant]
     Active Substance: LISINOPRIL
  14. NAPROXEN. [Concomitant]
     Active Substance: NAPROXEN
  15. AMITRIPTYLINE [Concomitant]
     Active Substance: AMITRIPTYLINE
  16. RANITIDINE. [Concomitant]
     Active Substance: RANITIDINE
  17. DESCOVY [Concomitant]
     Active Substance: EMTRICITABINE\TENOFOVIR ALAFENAMIDE FUMARATE
  18. VITAMIN D3 [Concomitant]
     Active Substance: CHOLECALCIFEROL
  19. PAXIL [Concomitant]
     Active Substance: PAROXETINE HYDROCHLORIDE
  20. BACTRIM [Concomitant]
     Active Substance: SULFAMETHOXAZOLE\TRIMETHOPRIM
  21. ACYCLOVIR [ACICLOVIR] [Concomitant]
     Active Substance: ACYCLOVIR
  22. VIREAD [Suspect]
     Active Substance: TENOFOVIR DISOPROXIL FUMARATE
     Indication: HIV INFECTION
     Dosage: UNK
     Route: 048
  23. REYATAZ [Concomitant]
     Active Substance: ATAZANAVIR SULFATE
  24. PREDNISONE. [Concomitant]
     Active Substance: PREDNISONE
  25. ASPIRIN (E.C.) [Concomitant]
     Active Substance: ASPIRIN

REACTIONS (14)
  - Emotional distress [Not Recovered/Not Resolved]
  - Tooth loss [Not Recovered/Not Resolved]
  - Dental caries [Unknown]
  - Bone density decreased [Unknown]
  - Anxiety [Not Recovered/Not Resolved]
  - Depression [Not Recovered/Not Resolved]
  - Pain [Unknown]
  - Tooth fracture [Unknown]
  - Economic problem [Unknown]
  - Osteoarthritis [Not Recovered/Not Resolved]
  - Fracture [Unknown]
  - Osteonecrosis [Not Recovered/Not Resolved]
  - Osteopenia [Not Recovered/Not Resolved]
  - Anhedonia [Unknown]

NARRATIVE: CASE EVENT DATE: 2012
